FAERS Safety Report 5472109-5 (Version None)
Quarter: 2007Q3

REPORT INFORMATION
  Report Type: 
  Country: None (occurrence: None)
  Receive Date: 20070928
  Receipt Date: 20070918
  Transmission Date: 20080115
  Serious: Yes (Life-Threatening, Hospitalization, Other)
  Sender: FDA-Public Use
  Company Number: SE-ABBOTT-07P-150-0374425-00

PATIENT
  Sex: Female

DRUGS (3)
  1. HUMIRA [Suspect]
     Indication: RHEUMATOID ARTHRITIS
     Route: 058
     Dates: start: 20050516, end: 20060901
  2. PARACETAMOL [Concomitant]
     Indication: DRUG USE FOR UNKNOWN INDICATION
     Route: 048
  3. SOTALOL HYDROCHLORIDE [Concomitant]
     Indication: DRUG USE FOR UNKNOWN INDICATION
     Route: 048

REACTIONS (7)
  - AORTIC ARTERIOSCLEROSIS [None]
  - BRADYCARDIA [None]
  - CARDIAC ANEURYSM [None]
  - HIP ARTHROPLASTY [None]
  - MYOCARDIAL ISCHAEMIA [None]
  - PULSE ABSENT [None]
  - RIGHT ATRIAL DILATATION [None]
